FAERS Safety Report 15296237 (Version 2)
Quarter: 2018Q3

REPORT INFORMATION
  Report Type: Report from Study
  Country: GE (occurrence: GE)
  Receive Date: 20180820
  Receipt Date: 20180917
  Transmission Date: 20181010
  Serious: Yes (Other)
  Sender: FDA-Public Use
  Company Number: GE-JNJFOC-20180818996

PATIENT
  Age: 63 Year
  Sex: Female

DRUGS (19)
  1. BEDAQUILINE [Suspect]
     Active Substance: BEDAQUILINE
     Indication: PULMONARY TUBERCULOSIS
     Route: 048
     Dates: start: 20180730, end: 20180730
  2. MOXIFLOXACIN. [Suspect]
     Active Substance: MOXIFLOXACIN
     Indication: PULMONARY TUBERCULOSIS
     Route: 065
     Dates: start: 20180801
  3. CORVALOL [Concomitant]
     Active Substance: BROMISOVAL\PHENOBARBITAL SODIUM
     Indication: TACHYCARDIA
     Route: 048
     Dates: start: 20180721, end: 20180721
  4. PRETOMANID [Suspect]
     Active Substance: PRETOMANID
     Indication: PULMONARY TUBERCULOSIS
     Route: 048
     Dates: start: 20180801
  5. MOXIFLOXACIN. [Suspect]
     Active Substance: MOXIFLOXACIN
     Indication: PULMONARY TUBERCULOSIS
     Route: 065
     Dates: start: 20180730, end: 20180730
  6. IBUPROFEN. [Concomitant]
     Active Substance: IBUPROFEN
     Indication: PYREXIA
     Route: 048
     Dates: start: 20180723, end: 20180724
  7. BEDAQUILINE [Suspect]
     Active Substance: BEDAQUILINE
     Indication: PULMONARY TUBERCULOSIS
     Route: 048
     Dates: start: 20180801
  8. PRETOMANID [Suspect]
     Active Substance: PRETOMANID
     Indication: PULMONARY TUBERCULOSIS
     Route: 048
     Dates: start: 20180730, end: 20180730
  9. PYRAZINAMIDE. [Suspect]
     Active Substance: PYRAZINAMIDE
     Indication: PULMONARY TUBERCULOSIS
     Route: 065
     Dates: start: 20180730, end: 20180730
  10. SOLUTIO RINGERI [Concomitant]
     Indication: DETOXIFICATION
     Route: 042
     Dates: start: 20180725, end: 20180725
  11. BISOPROLOL [Concomitant]
     Active Substance: BISOPROLOL
     Indication: HYPERTENSION
     Route: 048
     Dates: start: 20180725, end: 20180813
  12. PYRAZINAMIDE. [Suspect]
     Active Substance: PYRAZINAMIDE
     Indication: PULMONARY TUBERCULOSIS
     Route: 065
     Dates: start: 20180801
  13. LORISTA [Concomitant]
     Active Substance: LOSARTAN POTASSIUM
     Indication: HYPERTENSION
     Route: 065
     Dates: start: 20180725, end: 20180813
  14. CEFTRIAXONE. [Concomitant]
     Active Substance: CEFTRIAXONE
     Indication: PYREXIA
     Route: 030
     Dates: start: 20180725, end: 20180729
  15. SODIUM CHLORIDE. [Concomitant]
     Active Substance: SODIUM CHLORIDE
     Indication: POISONING
     Route: 042
     Dates: start: 20180728, end: 20180729
  16. SOLUTIO RINGERI [Concomitant]
     Indication: DETOXIFICATION
     Route: 042
     Dates: start: 20180729, end: 20180729
  17. SOLUTIO RINGERI [Concomitant]
     Indication: DETOXIFICATION
     Route: 042
     Dates: start: 20180723, end: 20180723
  18. IBUPROFEN. [Concomitant]
     Active Substance: IBUPROFEN
     Indication: PYREXIA
     Route: 048
     Dates: start: 20180726, end: 20180729
  19. EPINEPHRINE HYDROCHLORIDE. [Concomitant]
     Active Substance: EPINEPHRINE HYDROCHLORIDE
     Indication: PUPIL DILATION PROCEDURE
     Route: 061
     Dates: start: 20180725, end: 20180725

REACTIONS (1)
  - Syncope [Recovered/Resolved]

NARRATIVE: CASE EVENT DATE: 20180730
